FAERS Safety Report 4589589-X (Version None)
Quarter: 2005Q1

REPORT INFORMATION
  Report Type: 
  Country: None (occurrence: None)
  Receive Date: 20050223
  Receipt Date: 20050216
  Transmission Date: 20050727
  Serious: Yes (Other)
  Sender: FDA-Public Use
  Company Number: ES-MERCK-0502ESP00049

PATIENT
  Age: 55 Year
  Sex: Male

DRUGS (2)
  1. SINGULAIR [Suspect]
     Indication: ASTHMA
     Route: 048
     Dates: end: 20050212
  2. THEOPHYLLINE SODIUM ACETATE [Concomitant]
     Route: 048

REACTIONS (1)
  - ASTHMA [None]
